FAERS Safety Report 5853846-7 (Version None)
Quarter: 2008Q3

REPORT INFORMATION
  Report Type: 
  Country: None (occurrence: None)
  Receive Date: 20080822
  Receipt Date: 20080812
  Transmission Date: 20090109
  Serious: Yes (Hospitalization, Other)
  Sender: FDA-Public Use
  Company Number: PHBS2007JP04768

PATIENT
  Sex: Male
  Weight: 68 kg

DRUGS (22)
  1. NEORAL [Suspect]
     Indication: HEART TRANSPLANT
     Dosage: 150 MG, QD
     Route: 048
     Dates: start: 20021112, end: 20021112
  2. NEORAL [Suspect]
     Dosage: 75 MG, QD
     Route: 048
     Dates: start: 20021113, end: 20021113
  3. NEORAL [Suspect]
     Dosage: 50 MG/DAY
     Route: 048
     Dates: start: 20021114, end: 20021123
  4. NEORAL [Suspect]
     Dosage: 100 MG/DAY
     Route: 048
     Dates: start: 20021121
  5. NEORAL [Suspect]
     Dosage: 300 MG/DAY
     Dates: end: 20030515
  6. NEORAL [Suspect]
     Dosage: 360 MG/DAY
     Dates: start: 20030516
  7. NEORAL [Suspect]
     Dosage: 380 MG/DAY
  8. NEORAL [Suspect]
     Dosage: 420 MG/DAY
     Dates: end: 20040330
  9. MYCOPHENOLATE MOFETIL [Suspect]
     Indication: HEART TRANSPLANT
     Dosage: 250 MG/DAY
     Route: 048
     Dates: start: 20021113
  10. MYCOPHENOLATE MOFETIL [Suspect]
     Dosage: 1 G/DAY
     Route: 048
  11. MYCOPHENOLATE MOFETIL [Suspect]
     Dosage: 2 G/DAY
  12. MYCOPHENOLATE MOFETIL [Suspect]
     Dosage: 1 G/DAY
  13. PREDONINE [Suspect]
     Indication: HEART TRANSPLANT
     Dosage: 20 MG/DAY
     Dates: start: 20021119
  14. PREDONINE [Suspect]
     Dosage: 15 MG/DAY
  15. PREDONINE [Suspect]
     Dosage: 20 MG/DAY
     Dates: end: 20070522
  16. BUFFERIN [Concomitant]
     Indication: ANTIPLATELET THERAPY
     Dosage: 1 DF, UNK
     Route: 048
     Dates: start: 20021126
  17. RENIVACE [Concomitant]
     Indication: HYPERTENSION
     Dosage: UNK
     Route: 048
     Dates: start: 20021125
  18. DIFLUCAN [Concomitant]
     Indication: PROPHYLAXIS
     Dosage: 1 DF, UNK
     Route: 048
     Dates: start: 20021121, end: 20051030
  19. COTRIM [Concomitant]
     Indication: PROPHYLAXIS
     Dosage: 1 DF, UNK
     Route: 048
     Dates: start: 20021118
  20. MUCOSTA [Concomitant]
     Indication: PROPHYLAXIS AGAINST GASTROINTESTINAL ULCER
     Dosage: 3 DF, UNK
     Route: 048
     Dates: start: 20021127
  21. PRAVASTATIN [Concomitant]
     Indication: HYPERLIPIDAEMIA
     Dosage: 2 DF, UNK
     Route: 048
  22. ORTHOCLONE OKT3 [Concomitant]
     Dosage: 3.5 MG/DAY
     Dates: end: 20021123

REACTIONS (6)
  - BLOOD CREATININE INCREASED [None]
  - CYTOMEGALOVIRUS ANTIGEN POSITIVE [None]
  - CYTOMEGALOVIRUS INFECTION [None]
  - HEART TRANSPLANT REJECTION [None]
  - SPINAL COMPRESSION FRACTURE [None]
  - WHITE BLOOD CELL COUNT DECREASED [None]
